FAERS Safety Report 8141174-9 (Version None)
Quarter: 2012Q1

REPORT INFORMATION
  Report Type: 
  Country: None (occurrence: None)
  Receive Date: 20120216
  Receipt Date: 20120214
  Transmission Date: 20120608
  Serious: No
  Sender: FDA-Public Use
  Company Number: US-PFIZER INC-2012040135

PATIENT
  Sex: Male
  Weight: 86.168 kg

DRUGS (4)
  1. LIPITOR [Suspect]
     Indication: BLOOD CHOLESTEROL INCREASED
     Dosage: 40 MG, 1X/DAY
     Route: 048
     Dates: start: 20010101
  2. CALCIUM [Concomitant]
     Dosage: UNK
  3. ACETYLSALICYLIC ACID [Concomitant]
     Indication: THROMBOSIS
     Dosage: 81 MG, UNK
  4. VITAMIN B-12 [Concomitant]
     Dosage: UNK

REACTIONS (1)
  - INFLAMMATION [None]
